FAERS Safety Report 5710099-8 (Version None)
Quarter: 2008Q2

REPORT INFORMATION
  Report Type: 
  Country: None (occurrence: None)
  Receive Date: 20080418
  Receipt Date: 20071226
  Transmission Date: 20081010
  Serious: No
  Sender: FDA-Public Use
  Company Number: US-ASTRAZENECA-2007UW23593

PATIENT
  Age: 69 Year
  Sex: Male
  Weight: 68 kg

DRUGS (7)
  1. METOPROLOL SUCCINATE [Suspect]
     Indication: HYPERTENSION
     Route: 048
     Dates: start: 20071001
  2. ALCOHOL [Interacting]
  3. XANAX [Concomitant]
  4. NORVASC [Concomitant]
  5. LIPITOR [Concomitant]
  6. POTASSIUM CHLORIDE [Concomitant]
  7. HYDROCHLOROTHIAZIDE [Concomitant]

REACTIONS (1)
  - LETHARGY [None]
